FAERS Safety Report 7606693-X (Version None)
Quarter: 2011Q3

REPORT INFORMATION
  Report Type: 
  Country: None (occurrence: None)
  Receive Date: 20110705
  Receipt Date: 20110621
  Transmission Date: 20111222
  Serious: Yes (Hospitalization)
  Sender: FDA-Public Use
  Company Number: 2011SP028926

PATIENT
  Age: 71 Year
  Sex: Female

DRUGS (12)
  1. TEMERIT /01339101/ [Concomitant]
  2. IRBESARTAN + HYDROCHLOROTHIAZIDE [Concomitant]
  3. BOCEPREVIR (SCH-503034) [Suspect]
     Indication: HEPATITIS C
     Dosage: 800 MG;TID
     Dates: start: 20110509
  4. LERCANIDIPINE [Concomitant]
  5. ASCORBIC ACID [Concomitant]
  6. VIRAFERONPEG [Suspect]
     Indication: HEPATITIS C
     Dosage: 100 MCG;QW;IV
     Route: 042
     Dates: start: 20110509
  7. TOCO [Concomitant]
  8. FOLIC ACID [Concomitant]
  9. REBETOL [Suspect]
     Indication: HEPATITIS C
     Dosage: 200 MG;BID
     Dates: start: 20110509
  10. ESCITALOPRAM OXALATE [Concomitant]
  11. LANSOPRAZOLE [Concomitant]
  12. ACETAMINOPHEN [Concomitant]

REACTIONS (11)
  - PAIN [None]
  - DIARRHOEA [None]
  - GENERAL PHYSICAL HEALTH DETERIORATION [None]
  - VOMITING [None]
  - RESPIRATORY RATE INCREASED [None]
  - CARDIAC MURMUR [None]
  - WHITE BLOOD CELL COUNT DECREASED [None]
  - BODY TEMPERATURE DECREASED [None]
  - HAEMOGLOBIN DECREASED [None]
  - BLOOD PRESSURE SYSTOLIC INCREASED [None]
  - PLATELET COUNT DECREASED [None]
